FAERS Safety Report 19645474 (Version 1)
Quarter: 2021Q3

REPORT INFORMATION
  Report Type: Spontaneous
  Country: US (occurrence: US)
  Receive Date: 20210730
  Receipt Date: 20210730
  Transmission Date: 20211014
  Serious: Yes (Hospitalization)
  Sender: FDA-Public Use
  Company Number: None

PATIENT
  Age: 69 Year
  Sex: Male

DRUGS (14)
  1. PREDNISONE. [Concomitant]
     Active Substance: PREDNISONE
  2. TACROLIMUS. [Suspect]
     Active Substance: TACROLIMUS
     Indication: RENAL TRANSPLANT
     Dosage: ?          OTHER FREQUENCY:EVERY 12 HOURS;?
     Route: 048
     Dates: start: 20151113
  3. IRBESARTAN. [Concomitant]
     Active Substance: IRBESARTAN
  4. TAMSULOSIN [Concomitant]
     Active Substance: TAMSULOSIN
  5. ENOXAPARIN [Concomitant]
     Active Substance: ENOXAPARIN
  6. CARVEDILOL. [Concomitant]
     Active Substance: CARVEDILOL
  7. SIMVASTATIN. [Concomitant]
     Active Substance: SIMVASTATIN
  8. TRAZODONE [Concomitant]
     Active Substance: TRAZODONE HYDROCHLORIDE
  9. WARFARIN [Concomitant]
     Active Substance: WARFARIN
  10. VITAMIN D [Concomitant]
     Active Substance: VITAMIN D NOS
  11. GABAPENTIN. [Concomitant]
     Active Substance: GABAPENTIN
  12. ALLOPURINOL. [Concomitant]
     Active Substance: ALLOPURINOL
  13. MYCOPHENOLATE [Concomitant]
     Active Substance: MYCOPHENOLIC ACID
  14. BUMETANIDE. [Concomitant]
     Active Substance: BUMETANIDE

REACTIONS (1)
  - Thrombosis [None]

NARRATIVE: CASE EVENT DATE: 20210717
